FAERS Safety Report 7375470-X (Version None)
Quarter: 2011Q1

REPORT INFORMATION
  Report Type: 
  Country: None (occurrence: None)
  Receive Date: 20110325
  Receipt Date: 20110316
  Transmission Date: 20110831
  Serious: Yes (Death, Other)
  Sender: FDA-Public Use
  Company Number: JP-MPIJNJ-2010-06101

PATIENT

DRUGS (12)
  1. VELCADE [Suspect]
     Indication: MULTIPLE MYELOMA
     Dosage: 1.9 MG, UNK
     Route: 042
     Dates: start: 20100105, end: 20100115
  2. GABAPEN [Concomitant]
     Indication: NEUROPATHY PERIPHERAL
     Dosage: 800 MG, UNK
     Route: 048
  3. VITANEURIN                         /00056102/ [Concomitant]
     Indication: PROPHYLAXIS
     Dosage: 75 MG, UNK
     Route: 048
     Dates: start: 20100105, end: 20100126
  4. BACTRIM [Concomitant]
     Indication: INFECTION PROPHYLAXIS
     Dosage: 7 DF, UNK
     Route: 048
     Dates: start: 20091216, end: 20100126
  5. PARIET [Concomitant]
     Indication: GASTRIC ULCER
     Dosage: 10 MG, UNK
     Route: 048
     Dates: start: 20091216
  6. MARZULENE [Concomitant]
     Indication: PROPHYLAXIS
     Dosage: 2 G, UNK
     Route: 048
     Dates: start: 20100105, end: 20100126
  7. CONFATANIN [Concomitant]
     Indication: PAIN
     Dosage: 180 MG, UNK
     Route: 048
     Dates: start: 20101205
  8. ITRIZOLE [Concomitant]
     Dosage: 20 ML, UNK
     Route: 042
     Dates: start: 20091216, end: 20100121
  9. ITRIZOLE [Concomitant]
     Indication: INFECTION PROPHYLAXIS
     Dosage: 200 MG, UNK
     Route: 048
     Dates: start: 20101117
  10. CRAVIT [Concomitant]
     Indication: INFECTION PROPHYLAXIS
     Dosage: 500 MG, UNK
     Dates: start: 20091216, end: 20100211
  11. VELCADE [Suspect]
     Dosage: 1.9 MG, UNK
     Route: 042
     Dates: start: 20101119, end: 20101129
  12. LOPEMIN [Concomitant]
     Route: 048

REACTIONS (5)
  - PNEUMONIA [None]
  - MULTIPLE MYELOMA [None]
  - ENTEROCOLITIS [None]
  - DIARRHOEA [None]
  - NEUROPATHY PERIPHERAL [None]
